FAERS Safety Report 22241531 (Version 3)
Quarter: 2023Q2

REPORT INFORMATION
  Report Type: Report from Study
  Country: US (occurrence: US)
  Receive Date: 20230421
  Receipt Date: 20230508
  Transmission Date: 20230721
  Serious: Yes (Hospitalization, Other)
  Sender: FDA-Public Use
  Company Number: US-002147023-NVSC2023US087933

PATIENT
  Sex: Female

DRUGS (1)
  1. COSENTYX [Suspect]
     Active Substance: SECUKINUMAB
     Indication: Product used for unknown indication
     Dosage: 150 MG, Q2W (2 INJECTIONS UNDER THE SKIN MONTHLY)
     Route: 042
     Dates: start: 20190813

REACTIONS (3)
  - Sepsis [Unknown]
  - Psoriatic arthropathy [Unknown]
  - Pain [Unknown]
